FAERS Safety Report 24073960 (Version 1)
Quarter: 2024Q3

REPORT INFORMATION
  Report Type: Spontaneous
  Country: JP (occurrence: JP)
  Receive Date: 20240710
  Receipt Date: 20240710
  Transmission Date: 20241016
  Serious: No
  Sender: PIERRE FABRE MEDICAMENT
  Company Number: JP-PFM-2021-00692

PATIENT
  Age: 2 Month
  Sex: Female

DRUGS (6)
  1. PROPRANOLOL HYDROCHLORIDE [Suspect]
     Active Substance: PROPRANOLOL HYDROCHLORIDE
     Indication: Infantile haemangioma
     Dosage: 0.5 MG/KG, BID (2/DAY) (1.0 MG/KG ) (4.875MG) IN THE EVENING
     Route: 048
     Dates: start: 20191002, end: 20191006
  2. PROPRANOLOL HYDROCHLORIDE [Suspect]
     Active Substance: PROPRANOLOL HYDROCHLORIDE
     Dosage: 0.25 MG/KG, BID (2/DAY) (0.5 MG/KG )
     Route: 048
     Dates: start: 20191007, end: 20191011
  3. LACTULOSE [Concomitant]
     Active Substance: LACTULOSE
     Indication: Infantile haemangioma
     Dosage: 6 MG
     Route: 048
     Dates: start: 20191004
  4. Incremin [Concomitant]
     Indication: Product used for unknown indication
     Dosage: 3 MG, DAILY
     Route: 048
     Dates: start: 20191007
  5. SPIRONOLACTONE [Concomitant]
     Active Substance: SPIRONOLACTONE
     Indication: Product used for unknown indication
     Dosage: 4.8 MG, DAILY
     Route: 048
     Dates: start: 20191007
  6. DIAZOXIDE [Concomitant]
     Active Substance: DIAZOXIDE
     Indication: Product used for unknown indication
     Dosage: 21 MG, DAILY
     Route: 065
     Dates: start: 20191007

REACTIONS (2)
  - Hyperinsulinaemic hypoglycaemia [Recovered/Resolved]
  - Hypoglycaemia [Recovering/Resolving]

NARRATIVE: CASE EVENT DATE: 20191004
